FAERS Safety Report 5588008-4 (Version None)
Quarter: 2008Q1

REPORT INFORMATION
  Report Type: 
  Country: None (occurrence: None)
  Receive Date: 20080111
  Receipt Date: 20071228
  Transmission Date: 20080703
  Serious: Yes (Other)
  Sender: FDA-Public Use
  Company Number: US-PFIZER INC-2007108960

PATIENT
  Sex: Female
  Weight: 90.909 kg

DRUGS (6)
  1. LYRICA [Suspect]
     Indication: NEUROPATHY PERIPHERAL
     Dates: start: 20071001, end: 20071201
  2. PROCARDIA [Concomitant]
  3. ACCUPRIL [Concomitant]
  4. GLYBURIDE [Concomitant]
  5. METFORMIN HCL [Concomitant]
  6. VYTORIN [Concomitant]

REACTIONS (8)
  - ABASIA [None]
  - CONSTIPATION [None]
  - CRYING [None]
  - FEELING ABNORMAL [None]
  - HAEMOGLOBIN ABNORMAL [None]
  - PERSONALITY CHANGE [None]
  - SLEEP DISORDER [None]
  - VISUAL DISTURBANCE [None]
